FAERS Safety Report 19358418 (Version 1)
Quarter: 2021Q2

REPORT INFORMATION
  Report Type: Spontaneous
  Country: US (occurrence: US)
  Receive Date: 20210531
  Receipt Date: 20210531
  Transmission Date: 20210717
  Serious: No
  Sender: FDA-Public Use
  Company Number: US-SA-2021SA178862

PATIENT
  Sex: Female

DRUGS (12)
  1. DUPIXENT [Suspect]
     Active Substance: DUPILUMAB
     Indication: OSTEOPOROSIS
     Route: 058
  2. SYNTHROID [Concomitant]
     Active Substance: LEVOTHYROXINE SODIUM
  3. DUPIXENT [Suspect]
     Active Substance: DUPILUMAB
     Indication: ASTHMA
  4. LORAZEPAM. [Concomitant]
     Active Substance: LORAZEPAM
  5. ALBUTEROL [SALBUTAMOL] [Concomitant]
     Active Substance: ALBUTEROL
     Dosage: 2.5 MG/0.5 ML SOL
  6. IPRATROPIUM BROMIDE. [Concomitant]
     Active Substance: IPRATROPIUM BROMIDE
  7. PREDNISONE. [Concomitant]
     Active Substance: PREDNISONE
  8. VFEND [Concomitant]
     Active Substance: VORICONAZOLE
  9. SINGULAIR [Concomitant]
     Active Substance: MONTELUKAST SODIUM
  10. MEROPENEM. [Concomitant]
     Active Substance: MEROPENEM
  11. ALPRAZOLAM. [Concomitant]
     Active Substance: ALPRAZOLAM
  12. ADVAIR HFA [Concomitant]
     Active Substance: FLUTICASONE PROPIONATE\SALMETEROL XINAFOATE
     Dosage: 250?50 DISKUS

REACTIONS (2)
  - Blood cholesterol increased [Unknown]
  - Product use in unapproved indication [Unknown]
